FAERS Safety Report 15629178 (Version 3)
Quarter: 2018Q4

REPORT INFORMATION
  Report Type: Spontaneous
  Country: US (occurrence: US)
  Receive Date: 20181116
  Receipt Date: 20181130
  Transmission Date: 20190205
  Serious: No
  Sender: FDA-Public Use
  Company Number: US-BIOGEN-2018BI00657603

PATIENT
  Sex: Female

DRUGS (1)
  1. TYSABRI [Suspect]
     Active Substance: NATALIZUMAB
     Indication: MULTIPLE SCLEROSIS
     Dosage: INFUSED OVER 1 HOUR
     Route: 042
     Dates: start: 20160425

REACTIONS (18)
  - Fatigue [Unknown]
  - Mental disorder [Not Recovered/Not Resolved]
  - Prescribed underdose [Unknown]
  - Headache [Unknown]
  - Muscle spasms [Unknown]
  - Pain [Unknown]
  - Muscle twitching [Unknown]
  - Frustration tolerance decreased [Unknown]
  - Anxiety [Unknown]
  - Mobility decreased [Unknown]
  - Migraine [Unknown]
  - Muscle spasticity [Unknown]
  - Product dose omission [Not Recovered/Not Resolved]
  - Pain in extremity [Unknown]
  - Neuralgia [Unknown]
  - Stress [Unknown]
  - Depression [Unknown]
  - Insomnia [Unknown]
